FAERS Safety Report 16946102 (Version 1)
Quarter: 2019Q4

REPORT INFORMATION
  Report Type: Spontaneous
  Country: US (occurrence: US)
  Receive Date: 20191022
  Receipt Date: 20191022
  Transmission Date: 20200122
  Serious: No
  Sender: FDA-Public Use
  Company Number: US-PFIZER INC-2019450465

PATIENT
  Age: 66 Year
  Sex: Female

DRUGS (5)
  1. LUNESTA [Suspect]
     Active Substance: ESZOPICLONE
     Dosage: UNK
  2. MORPHINE SULFATE. [Suspect]
     Active Substance: MORPHINE SULFATE
     Dosage: UNK
  3. CELEBREX [Suspect]
     Active Substance: CELECOXIB
     Dosage: UNK
  4. AUGMENTIN [Suspect]
     Active Substance: AMOXICILLIN\CLAVULANATE POTASSIUM
     Dosage: UNK
  5. NAPROSYN [Suspect]
     Active Substance: NAPROXEN
     Dosage: UNK

REACTIONS (1)
  - Drug hypersensitivity [Unknown]
